FAERS Safety Report 8695100 (Version 2)
Quarter: 2013Q4

REPORT INFORMATION
  Report Type: Spontaneous
  Country: US (occurrence: US)
  Receive Date: 20120731
  Receipt Date: 20131101
  Transmission Date: 20140711
  Serious: No
  Sender: FDA-Public Use
  Company Number: US-009507513-1207USA005249

PATIENT
  Age: 78 Year
  Sex: Female

DRUGS (15)
  1. ZIOPTAN [Suspect]
     Indication: GLAUCOMA
     Dosage: 2DROPS, QD
     Route: 047
     Dates: start: 20120627
  2. LOTREL [Concomitant]
  3. LIPITOR [Concomitant]
  4. TORSEMIDE [Concomitant]
  5. ZAROXOLYN [Concomitant]
  6. GLYBURIDE [Concomitant]
  7. VITAMINS (UNSPECIFIED) [Concomitant]
  8. COREG [Concomitant]
  9. FEOSOL [Concomitant]
  10. CATAPRES [Concomitant]
  11. TRAMADOL HYDROCHLORIDE [Concomitant]
     Dosage: UNK, PRN
  12. PROZAC [Concomitant]
  13. OMEPRAZOLE [Concomitant]
  14. ASPIRIN [Concomitant]
  15. ALPHAGAN P [Concomitant]
     Indication: GLAUCOMA

REACTIONS (3)
  - Pruritus [Not Recovered/Not Resolved]
  - Eye pruritus [Not Recovered/Not Resolved]
  - Blood glucose increased [Not Recovered/Not Resolved]
